FAERS Safety Report 13145557 (Version 3)
Quarter: 2017Q2

REPORT INFORMATION
  Report Type: Report from Study
  Country: None (occurrence: CH)
  Receive Date: 20170124
  Receipt Date: 20170609
  Transmission Date: 20170830
  Serious: Yes (Hospitalization)
  Sender: FDA-Public Use
  Company Number: CH-ABBVIE-17K-151-1850286-00

PATIENT
  Age: 80 Year
  Sex: Female

DRUGS (4)
  1. DUODOPA [Suspect]
     Active Substance: CARBIDOPA\LEVODOPA
     Dosage: MORNING DOSE: 7,5ML, CONTINUOUS RATE: 3,4ML/H, EXTRA DOSE: 2,0ML
     Route: 050
     Dates: start: 20170119
  2. NEUPRO [Concomitant]
     Active Substance: ROTIGOTINE
     Indication: PRODUCT USED FOR UNKNOWN INDICATION
     Route: 062
  3. DUODOPA [Suspect]
     Active Substance: CARBIDOPA\LEVODOPA
     Indication: PARKINSON^S DISEASE
     Dosage: MORNING DOSE: 7,5ML, CONTINUOUS RATE: 3,4ML/H, EXTRA DOSE: 2,0ML, 16H THERAPY
     Route: 050
     Dates: start: 20160127, end: 20170117
  4. DUODOPA [Suspect]
     Active Substance: CARBIDOPA\LEVODOPA
     Dosage: MORNING DOSE: 7,5ML, CONTINUOUS RATE: 3,4ML/H, EXTRA DOSE: 2,0ML
     Route: 050
     Dates: start: 20170117, end: 20170119

REACTIONS (4)
  - Device dislocation [Recovered/Resolved]
  - Volvulus [Unknown]
  - Incorrect route of drug administration [Recovered/Resolved]
  - Device leakage [Recovered/Resolved]

NARRATIVE: CASE EVENT DATE: 20170117
